FAERS Safety Report 13353306 (Version 1)
Quarter: 2017Q1

REPORT INFORMATION
  Report Type: Spontaneous
  Country: US (occurrence: US)
  Receive Date: 20170317
  Receipt Date: 20170317
  Transmission Date: 20170429
  Serious: No
  Sender: FDA-Public Use
  Company Number: None

PATIENT
  Age: 62 Year
  Sex: Female

DRUGS (16)
  1. CYCLOBENZAPR [Concomitant]
  2. VENLAFAXINE [Concomitant]
     Active Substance: VENLAFAXINE HYDROCHLORIDE
  3. OCALIVA [Suspect]
     Active Substance: OBETICHOLIC ACID
     Indication: BILIARY CIRRHOSIS PRIMARY
     Route: 048
  4. TRAMADOL HCL [Concomitant]
     Active Substance: TRAMADOL HYDROCHLORIDE
  5. PREDNISONE. [Concomitant]
     Active Substance: PREDNISONE
  6. ALLOPURINOL. [Concomitant]
     Active Substance: ALLOPURINOL
  7. NIFEDICAL XL [Concomitant]
     Active Substance: NIFEDIPINE
  8. SIMVASTATIN. [Concomitant]
     Active Substance: SIMVASTATIN
  9. LISINOPRIL. [Concomitant]
     Active Substance: LISINOPRIL
  10. OMEPRAZOLE. [Concomitant]
     Active Substance: OMEPRAZOLE
  11. CLOPIDOGREL [Concomitant]
     Active Substance: CLOPIDOGREL BISULFATE
  12. URSODIOL. [Concomitant]
     Active Substance: URSODIOL
  13. HYDROCHLOROT [Concomitant]
     Active Substance: HYDROCHLOROTHIAZIDE
  14. MELOXICAM. [Concomitant]
     Active Substance: MELOXICAM
  15. METOPROLOL. [Concomitant]
     Active Substance: METOPROLOL
  16. GABAPENTIN. [Concomitant]
     Active Substance: GABAPENTIN

REACTIONS (4)
  - Therapeutic response decreased [None]
  - Therapy change [None]
  - Product availability issue [None]
  - Incorrect dose administered [None]

NARRATIVE: CASE EVENT DATE: 20170314
